FAERS Safety Report 10095815 (Version 2)
Quarter: 2014Q2

REPORT INFORMATION
  Report Type: Spontaneous
  Country: US (occurrence: US)
  Receive Date: 20140422
  Receipt Date: 20140422
  Transmission Date: 20141212
  Serious: No
  Sender: FDA-Public Use
  Company Number: US-GILEAD-2013-0074204

PATIENT
  Sex: Female

DRUGS (2)
  1. LETAIRIS [Suspect]
     Indication: PULMONARY HYPERTENSION
     Dosage: 2.5 MG, QD
     Dates: start: 20120405
  2. LETAIRIS [Suspect]
     Indication: HIV INFECTION

REACTIONS (7)
  - Weight decreased [Unknown]
  - Weight increased [Unknown]
  - Diarrhoea [Unknown]
  - Ill-defined disorder [Unknown]
  - Nasal congestion [Unknown]
  - Headache [Unknown]
  - Vomiting [Unknown]
